FAERS Safety Report 22073512 (Version 9)
Quarter: 2023Q4

REPORT INFORMATION
  Report Type: Report from Study
  Country: IL (occurrence: IL)
  Receive Date: 20230308
  Receipt Date: 20231229
  Transmission Date: 20240110
  Serious: Yes (Hospitalization)
  Sender: FDA-Public Use
  Company Number: IL-002147023-NVSC2023IL001979

PATIENT
  Age: 91 Year
  Sex: Female

DRUGS (5)
  1. SANDOSTATIN LAR DEPOT [Suspect]
     Active Substance: OCTREOTIDE ACETATE
     Indication: Neuroendocrine carcinoma
     Dosage: 30 MG, Q4W (ROUTE-INTRAGLUTEAL)
     Route: 030
     Dates: start: 20100523
  2. SANDOSTATIN LAR DEPOT [Suspect]
     Active Substance: OCTREOTIDE ACETATE
     Dosage: 30 MG, Q4W (ROUTE-INTRAGLUTEAL)
     Route: 030
     Dates: start: 20100523
  3. SANDOSTATIN LAR DEPOT [Suspect]
     Active Substance: OCTREOTIDE ACETATE
     Dosage: 30 MG, Q4W (ROUTE: INTRAGLUTEAL)
     Route: 030
     Dates: start: 20100523
  4. SANDOSTATIN LAR DEPOT [Suspect]
     Active Substance: OCTREOTIDE ACETATE
     Dosage: 30 MG, Q4W (ROUTE: INTRAGLUTEAL)
     Route: 030
     Dates: start: 20100523
  5. SANDOSTATIN LAR DEPOT [Suspect]
     Active Substance: OCTREOTIDE ACETATE
     Dosage: 30 MG, Q4W (ROUTE: INTRAGLUTEAL)
     Route: 030
     Dates: start: 20231126

REACTIONS (7)
  - Pneumonia [Recovered/Resolved]
  - Pulmonary oedema [Not Recovered/Not Resolved]
  - Coronavirus infection [Recovering/Resolving]
  - Dyspnoea [Not Recovered/Not Resolved]
  - Chest pain [Not Recovered/Not Resolved]
  - Asthenia [Not Recovered/Not Resolved]
  - Arthralgia [Not Recovered/Not Resolved]

NARRATIVE: CASE EVENT DATE: 20230205
